FAERS Safety Report 7228233-X (Version None)
Quarter: 2011Q1

REPORT INFORMATION
  Report Type: 
  Country: None (occurrence: None)
  Receive Date: 20110114
  Receipt Date: 20110111
  Transmission Date: 20110831
  Serious: Yes (Hospitalization)
  Sender: FDA-Public Use
  Company Number: CHPA2011US00873

PATIENT
  Age: 57 Year
  Sex: Male
  Weight: 84.807 kg

DRUGS (2)
  1. THERAFLU FLU AND SORE THROAT [Suspect]
     Indication: OROPHARYNGEAL PAIN
     Dosage: UNK , UNK
     Route: 048
     Dates: start: 20110103, end: 20110103
  2. LITHIUM CARBONATE [Concomitant]
     Indication: BIPOLAR DISORDER
     Route: 048

REACTIONS (3)
  - ANXIETY [None]
  - DYSPNOEA [None]
  - PANIC ATTACK [None]
